FAERS Safety Report 15893225 (Version 1)
Quarter: 2019Q1

REPORT INFORMATION
  Report Type: Report from Study
  Country: US (occurrence: US)
  Receive Date: 20190130
  Receipt Date: 20190130
  Transmission Date: 20190417
  Serious: No
  Sender: FDA-Public Use
  Company Number: US-EXELIXIS-CABO-18015593

PATIENT
  Age: 65 Year
  Sex: Male

DRUGS (13)
  1. DOXAZOSIN [Concomitant]
     Active Substance: DOXAZOSIN\DOXAZOSIN MESYLATE
  2. GABAPENTIN. [Concomitant]
     Active Substance: GABAPENTIN
  3. TRIAMCINOLONE [Concomitant]
     Active Substance: TRIAMCINOLONE
  4. CLOTRIMAZOLE. [Concomitant]
     Active Substance: CLOTRIMAZOLE
  5. COMETRIQ [Suspect]
     Active Substance: CABOZANTINIB S-MALATE
     Indication: THYROID CANCER
     Dosage: 60 MG, QD
     Route: 048
     Dates: start: 20180801, end: 201808
  6. DIOVAN [Concomitant]
     Active Substance: VALSARTAN
  7. CALCIUM [Concomitant]
     Active Substance: CALCIUM
  8. LIDOCAINE. [Concomitant]
     Active Substance: LIDOCAINE
  9. SYNTHROID [Concomitant]
     Active Substance: LEVOTHYROXINE SODIUM
  10. DILTIAZEM. [Concomitant]
     Active Substance: DILTIAZEM
  11. LOPERAMIDE [Concomitant]
     Active Substance: LOPERAMIDE
  12. MAGNESIUM OXIDE. [Concomitant]
     Active Substance: MAGNESIUM OXIDE
  13. PROTONIX [Concomitant]
     Active Substance: PANTOPRAZOLE SODIUM

REACTIONS (3)
  - Pain in extremity [Unknown]
  - Abdominal pain upper [Unknown]
  - Dysphonia [Unknown]

NARRATIVE: CASE EVENT DATE: 201808
